FAERS Safety Report 8571428-3 (Version None)
Quarter: 2012Q3

REPORT INFORMATION
  Report Type: 
  Country: None (occurrence: None)
  Receive Date: 20120806
  Receipt Date: 20120726
  Transmission Date: 20120928
  Serious: Yes (Other)
  Sender: FDA-Public Use
  Company Number: CA-JNJFOC-20120713657

PATIENT
  Sex: Female
  Weight: 60.3 kg

DRUGS (6)
  1. REMICADE [Suspect]
     Dosage: DOSE DOUBLED
     Route: 042
     Dates: start: 20120101
  2. REMICADE [Suspect]
     Route: 042
  3. CODEINE [Concomitant]
     Route: 065
  4. VITAMIN B-12 [Concomitant]
     Route: 065
  5. REMICADE [Suspect]
     Indication: CROHN'S DISEASE
     Route: 042
  6. IRON INFUSIONS [Concomitant]
     Route: 065

REACTIONS (2)
  - WEIGHT DECREASED [None]
  - POUCHITIS [None]
